FAERS Safety Report 12455940 (Version 1)
Quarter: 2016Q2

REPORT INFORMATION
  Report Type: Spontaneous
  Country: US (occurrence: US)
  Receive Date: 20160610
  Receipt Date: 20160610
  Transmission Date: 20160815
  Serious: No
  Sender: FDA-Public Use
  Company Number: US-BAYER-2016-113955

PATIENT
  Age: 82 Year
  Sex: Female

DRUGS (1)
  1. ALEVE [Suspect]
     Active Substance: NAPROXEN SODIUM
     Dosage: 6 DF, ONCE
     Route: 048
     Dates: start: 20160609, end: 20160609

REACTIONS (1)
  - Product use issue [None]

NARRATIVE: CASE EVENT DATE: 20160609
